FAERS Safety Report 9681069 (Version 1)
Quarter: 2013Q4

REPORT INFORMATION
  Report Type: Spontaneous
  Country: FR (occurrence: FR)
  Receive Date: 20131111
  Receipt Date: 20131111
  Transmission Date: 20140711
  Serious: Yes (Hospitalization)
  Sender: FDA-Public Use
  Company Number: FR-JNJFOC-20131105138

PATIENT
  Sex: Male
  Weight: 80 kg

DRUGS (9)
  1. XARELTO [Suspect]
     Indication: CEREBROVASCULAR ACCIDENT PROPHYLAXIS
     Route: 048
     Dates: start: 201212, end: 20130909
  2. XARELTO [Suspect]
     Indication: ATRIAL FIBRILLATION
     Route: 048
     Dates: start: 201212, end: 20130909
  3. KARDEGIC [Suspect]
     Indication: ISCHAEMIC CARDIOMYOPATHY
     Route: 048
  4. INEXIUM [Concomitant]
     Route: 065
  5. CORDARONE [Concomitant]
     Route: 065
  6. UVEDOSE [Concomitant]
     Route: 065
  7. OMACOR [Concomitant]
     Dosage: ONE MORNING AND EVENING
     Route: 065
  8. CARDENSIEL [Concomitant]
     Route: 065
  9. TAHOR [Concomitant]
     Route: 065

REACTIONS (3)
  - Iron deficiency anaemia [Recovering/Resolving]
  - Angina pectoris [Recovered/Resolved]
  - Gastrointestinal haemorrhage [Recovered/Resolved]
